FAERS Safety Report 10767672 (Version 2)
Quarter: 2015Q1

REPORT INFORMATION
  Report Type: Spontaneous
  Country: TW (occurrence: TW)
  Receive Date: 20150205
  Receipt Date: 20150217
  Transmission Date: 20150721
  Serious: Yes (Life-Threatening)
  Sender: FDA-Public Use
  Company Number: TW-GE HEALTHCARE MEDICAL DIAGNOSTICS-OSCN-PR-1502S-0011

PATIENT
  Age: 34 Year
  Sex: Female

DRUGS (2)
  1. OMNISCAN [Suspect]
     Active Substance: GADODIAMIDE
     Indication: DIAGNOSTIC PROCEDURE
  2. OMNISCAN [Suspect]
     Active Substance: GADODIAMIDE
     Indication: PHYSICAL EXAMINATION
     Route: 042
     Dates: start: 20150129, end: 20150129

REACTIONS (5)
  - Nausea [Recovered/Resolved]
  - Dyspnoea [Recovered/Resolved]
  - Altered state of consciousness [Recovered/Resolved]
  - Laryngeal oedema [Recovered/Resolved]
  - Syncope [Recovered/Resolved]

NARRATIVE: CASE EVENT DATE: 20150129
